FAERS Safety Report 5076704-7 (Version None)
Quarter: 2006Q3

REPORT INFORMATION
  Report Type: 
  Country: None (occurrence: None)
  Receive Date: 20060810
  Receipt Date: 20060210
  Transmission Date: 20061208
  Serious: Yes (Hospitalization)
  Sender: FDA-Public Use
  Company Number: FR-AVENTIS-200610558FR

PATIENT
  Age: 24 Year
  Sex: Female
  Weight: 59 kg

DRUGS (5)
  1. KETEK [Suspect]
     Indication: SINUSITIS
     Route: 048
     Dates: start: 20050210, end: 20050213
  2. SOLUPRED [Concomitant]
     Indication: SINUSITIS
     Route: 048
     Dates: start: 20050210
  3. EXOMUC [Concomitant]
     Indication: SINUSITIS
     Route: 048
  4. NUROFEN [Concomitant]
  5. DOLIPRANE [Concomitant]
     Route: 048
     Dates: start: 20050203, end: 20050203

REACTIONS (9)
  - ASTHENIA [None]
  - CHEILITIS [None]
  - DRUG RASH WITH EOSINOPHILIA AND SYSTEMIC SYMPTOMS [None]
  - FACE OEDEMA [None]
  - HEPATITIS [None]
  - HEPATITIS CHOLESTATIC [None]
  - HEPATOCELLULAR DAMAGE [None]
  - PRURITUS [None]
  - URTICARIA [None]
